FAERS Safety Report 4998248-0 (Version None)
Quarter: 2006Q2

REPORT INFORMATION
  Report Type: 
  Country: None (occurrence: None)
  Receive Date: 20060508
  Receipt Date: 20060410
  Transmission Date: 20061013
  Serious: Yes (Hospitalization)
  Sender: FDA-Public Use
  Company Number: M03-341-060

PATIENT
  Age: 75 Year
  Sex: Male
  Weight: 89 kg

DRUGS (1)
  1. VELCADE [Suspect]
     Indication: MULTIPLE MYELOMA
     Dosage: 2.6 , INTRAVENOUS
     Route: 042
     Dates: start: 20030729, end: 20030808

REACTIONS (8)
  - CARDIAC FAILURE CONGESTIVE [None]
  - CARDIOMEGALY [None]
  - CHEST PAIN [None]
  - DILATATION VENTRICULAR [None]
  - DYSPNOEA [None]
  - LUNG DISORDER [None]
  - LUNG INFILTRATION [None]
  - PNEUMONITIS [None]
